FAERS Safety Report 11381672 (Version 1)
Quarter: 2015Q3

REPORT INFORMATION
  Report Type: Spontaneous
  Country: US (occurrence: US)
  Receive Date: 20150814
  Receipt Date: 20150814
  Transmission Date: 20151125
  Serious: No
  Sender: FDA-Public Use
  Company Number: US-GALDERMA-US14003900

PATIENT
  Age: 73 Year
  Sex: Male

DRUGS (3)
  1. DOVE BAR SOAP [Concomitant]
     Indication: THERAPEUTIC SKIN CARE TOPICAL
     Route: 061
  2. DIFFERIN [Suspect]
     Active Substance: ADAPALENE
     Indication: PRURITUS
  3. DIFFERIN [Suspect]
     Active Substance: ADAPALENE
     Indication: SKIN EXFOLIATION
     Dosage: 0.3%
     Route: 061
     Dates: start: 201409, end: 201409

REACTIONS (4)
  - Pruritus [Recovering/Resolving]
  - Off label use [Recovered/Resolved]
  - Erythema [Recovering/Resolving]
  - Skin burning sensation [Recovering/Resolving]

NARRATIVE: CASE EVENT DATE: 201409
